FAERS Safety Report 13624550 (Version 1)
Quarter: 2017Q2

REPORT INFORMATION
  Report Type: Spontaneous
  Country: US (occurrence: US)
  Receive Date: 20170608
  Receipt Date: 20170608
  Transmission Date: 20170830
  Serious: No
  Sender: FDA-Public Use
  Company Number: US-PFIZER INC-2017244264

PATIENT
  Sex: Female

DRUGS (1)
  1. XELJANZ XR [Suspect]
     Active Substance: TOFACITINIB CITRATE
     Dosage: 11 MG, UNK

REACTIONS (10)
  - Headache [Unknown]
  - Chest pain [Unknown]
  - Peripheral swelling [Recovering/Resolving]
  - Blood pressure increased [Unknown]
  - Arthralgia [Unknown]
  - Poor quality sleep [Unknown]
  - Synovitis [Unknown]
  - Back pain [Unknown]
  - Fatigue [Unknown]
  - Tender joint count increased [Unknown]
